FAERS Safety Report 8602576-7 (Version None)
Quarter: 2012Q3

REPORT INFORMATION
  Report Type: 
  Country: None (occurrence: None)
  Receive Date: 20120817
  Receipt Date: 20120814
  Transmission Date: 20120928
  Serious: Yes (Other)
  Sender: FDA-Public Use
  Company Number: PHEH2012US015933

PATIENT
  Sex: Female

DRUGS (3)
  1. FANAPT [Suspect]
     Dosage: 1 MG, UNK
  2. ZOLOFT [Concomitant]
     Dosage: UNK UKN, UNK
  3. LATUDA [Concomitant]

REACTIONS (1)
  - PSYCHOTIC DISORDER [None]
